FAERS Safety Report 22753602 (Version 2)
Quarter: 2023Q4

REPORT INFORMATION
  Report Type: Spontaneous
  Country: US (occurrence: US)
  Receive Date: 20230726
  Receipt Date: 20231218
  Transmission Date: 20240110
  Serious: Yes (Other)
  Sender: FDA-Public Use
  Company Number: US-AMGEN-USASP2023126337

PATIENT
  Age: 72 Year
  Sex: Female

DRUGS (1)
  1. REPATHA [Suspect]
     Active Substance: EVOLOCUMAB
     Indication: Product used for unknown indication
     Dosage: 420 MILLIGRAM
     Route: 065

REACTIONS (6)
  - Breast cancer female [Unknown]
  - Lack of injection site rotation [Unknown]
  - Drug dose omission by device [Unknown]
  - Injection site urticaria [Unknown]
  - Injection site pain [Unknown]
  - Product administration error [Unknown]

NARRATIVE: CASE EVENT DATE: 20230716
